FAERS Safety Report 6198696-X (Version None)
Quarter: 2009Q2

REPORT INFORMATION
  Report Type: 
  Country: None (occurrence: None)
  Receive Date: 20090521
  Receipt Date: 20090515
  Transmission Date: 20091009
  Serious: Yes (Other)
  Sender: FDA-Public Use
  Company Number: PHHY2009BR18972

PATIENT
  Age: 77 Year
  Sex: Female
  Weight: 68 kg

DRUGS (5)
  1. DIOVAN HCT [Suspect]
     Indication: HYPERTENSION
     Dosage: ONE TABLET DAILY
  2. CILOSTAZOL [Concomitant]
     Dosage: ONE TABLET DAILY
     Route: 048
     Dates: start: 20080501
  3. SIMVASTATIN [Concomitant]
     Indication: BLOOD CHOLESTEROL
     Dosage: ONE TABLET DAILY
     Route: 048
  4. SELOPRES ZOK [Concomitant]
     Indication: HYPERTENSION
     Dosage: ONE TABLET DAILY
     Route: 048
     Dates: start: 20080501
  5. PANTOPRAZOLE SODIUM [Concomitant]
     Indication: GASTRITIS
     Dosage: 2 TABLETS DAILY
     Route: 048

REACTIONS (4)
  - BLOOD PRESSURE INCREASED [None]
  - CONDITION AGGRAVATED [None]
  - MEMORY IMPAIRMENT [None]
  - WEIGHT DECREASED [None]
